FAERS Safety Report 10836645 (Version 2)
Quarter: 2015Q1

REPORT INFORMATION
  Report Type: Report from Study
  Country: BR (occurrence: BR)
  Receive Date: 20150219
  Receipt Date: 20150308
  Transmission Date: 20150721
  Serious: Yes (Other)
  Sender: FDA-Public Use
  Company Number: PHHY2015BR020122

PATIENT
  Sex: Female
  Weight: 72 kg

DRUGS (3)
  1. FORASEQ [Concomitant]
     Active Substance: BUDESONIDE\FORMOTEROL FUMARATE
     Indication: BRONCHITIS
     Dosage: 12/4 UG (AS REPORTED), BID (MORNING AND NIGHT)
     Route: 055
  2. FORASEQ [Concomitant]
     Active Substance: BUDESONIDE\FORMOTEROL FUMARATE
     Indication: ASTHMA
  3. GALVUS [Suspect]
     Active Substance: VILDAGLIPTIN
     Indication: DIABETES MELLITUS
     Dosage: 50 MG, BID (LUNCH AND DINNER)
     Route: 048

REACTIONS (5)
  - Cataract [Recovering/Resolving]
  - Vision blurred [Recovering/Resolving]
  - Asthma [Recovering/Resolving]
  - Fatigue [Recovered/Resolved]
  - Cough [Recovering/Resolving]
